FAERS Safety Report 5738846-X (Version None)
Quarter: 2008Q2

REPORT INFORMATION
  Report Type: 
  Country: None (occurrence: None)
  Receive Date: 20080515
  Receipt Date: 20080410
  Transmission Date: 20081010
  Serious: No
  Sender: FDA-Public Use
  Company Number: A0722152A

PATIENT
  Sex: Male

DRUGS (2)
  1. VERAMYST [Suspect]
     Indication: MULTIPLE ALLERGIES
     Dosage: 27.5MCG PER DAY
     Route: 045
     Dates: start: 20080313
  2. BLOOD PRESSURE MEDICATION [Concomitant]

REACTIONS (1)
  - DRUG INEFFECTIVE [None]
